FAERS Safety Report 10688258 (Version 1)
Quarter: 2014Q4

REPORT INFORMATION
  Report Type: Spontaneous
  Country: US (occurrence: None)
  Receive Date: 20141231
  Receipt Date: 20141231
  Transmission Date: 20150529
  Serious: Yes (Hospitalization, Other)
  Sender: FDA-Public Use
  Company Number: 1713747-2014-999187

PATIENT
  Age: 29 Year
  Sex: Female
  Weight: 57.3 kg

DRUGS (4)
  1. DELFLEX [Suspect]
     Active Substance: CALCIUM CHLORIDE\DEXTROSE MONOHYDRATE\MAGNESIUM CHLORIDE\SODIUM CHLORIDE\SODIUM LACTATE
     Indication: CHRONIC KIDNEY DISEASE
     Route: 033
  2. LIBERTY CYCLER [Concomitant]
     Active Substance: DEVICE
  3. MAGNESIUM SUPPLEMENT [Concomitant]
  4. LIBERTY CYCLER CASSETTE [Concomitant]
     Active Substance: DEVICE

REACTIONS (3)
  - Hypomagnesaemia [None]
  - Seizure [None]
  - Refusal of treatment by patient [None]

NARRATIVE: CASE EVENT DATE: 20141014
